FAERS Safety Report 24284355 (Version 1)
Quarter: 2024Q3

REPORT INFORMATION
  Report Type: Spontaneous
  Country: GB (occurrence: GB)
  Receive Date: 20240905
  Receipt Date: 20240905
  Transmission Date: 20241017
  Serious: Yes (Life-Threatening, Hospitalization, Other)
  Sender: QUAGEN PHARMACEUTICALS
  Company Number: GB-QUAGEN-2024QUALIT00251

PATIENT
  Age: 39 Year
  Sex: Male

DRUGS (3)
  1. CLOBETASOL PROPIONATE [Suspect]
     Active Substance: CLOBETASOL PROPIONATE
     Indication: Epidermolysis bullosa
     Route: 061
  2. TAZOBACTAM [Concomitant]
     Active Substance: TAZOBACTAM
     Indication: Wound
     Route: 065
  3. VANCOMYCIN [Concomitant]
     Active Substance: VANCOMYCIN
     Indication: Wound
     Route: 065

REACTIONS (3)
  - Adrenocortical insufficiency acute [Unknown]
  - Adrenal insufficiency [Unknown]
  - Product use in unapproved indication [Unknown]
